FAERS Safety Report 6424943-2 (Version None)
Quarter: 2009Q4

REPORT INFORMATION
  Report Type: 
  Country: None (occurrence: None)
  Receive Date: 20091029
  Receipt Date: 20090811
  Transmission Date: 20100525
  Serious: Yes (Hospitalization)
  Sender: FDA-Public Use
  Company Number: 2009RR-26200

PATIENT
  Age: 64 Year
  Sex: Female

DRUGS (1)
  1. OFLOXACIN [Suspect]
     Indication: HAEMOPHILUS INFECTION
     Dosage: 400 MG, BID, ORAL
     Route: 048

REACTIONS (1)
  - CONVULSION [None]
